FAERS Safety Report 11589311 (Version 1)
Quarter: 2015Q4

REPORT INFORMATION
  Report Type: Spontaneous
  Country: US (occurrence: US)
  Receive Date: 20151002
  Receipt Date: 20151002
  Transmission Date: 20160304
  Serious: Yes (Other)
  Sender: FDA-Public Use
  Company Number: US-PFIZER INC-2015328050

PATIENT
  Age: 66 Year
  Sex: Male
  Weight: 156 kg

DRUGS (6)
  1. LYRICA [Suspect]
     Active Substance: PREGABALIN
     Indication: DIABETIC NEUROPATHY
     Dosage: 1 DF, DAILY
  2. LYRICA [Suspect]
     Active Substance: PREGABALIN
     Dosage: 3 DF, DAILY
  3. LANTUS [Concomitant]
     Active Substance: INSULIN GLARGINE
     Dosage: 32 IU, 2X/DAY
  4. KEFLEX [Concomitant]
     Active Substance: CEPHALEXIN
     Dosage: UNKNOWN
  5. LYRICA [Suspect]
     Active Substance: PREGABALIN
     Dosage: 2 DF, DAILY
  6. NOVOLOG [Concomitant]
     Active Substance: INSULIN ASPART
     Dosage: UNK

REACTIONS (12)
  - Erythema [Unknown]
  - Renal disorder [Unknown]
  - Restlessness [Unknown]
  - Weight increased [Not Recovered/Not Resolved]
  - Nervousness [Unknown]
  - Sepsis [Unknown]
  - Depression [Recovering/Resolving]
  - Blister [Recovering/Resolving]
  - Skin lesion [Recovering/Resolving]
  - Drug ineffective [Unknown]
  - Blood glucose abnormal [Unknown]
  - Panic attack [Unknown]

NARRATIVE: CASE EVENT DATE: 2015
